FAERS Safety Report 8000238-0 (Version None)
Quarter: 2011Q4

REPORT INFORMATION
  Report Type: 
  Country: None (occurrence: None)
  Receive Date: 20111222
  Receipt Date: 20111213
  Transmission Date: 20120403
  Serious: Yes (Hospitalization, Other)
  Sender: FDA-Public Use
  Company Number: FR-AMGEN-FRASP2011062113

PATIENT
  Age: 68 Year
  Sex: Female
  Weight: 80 kg

DRUGS (3)
  1. EFFERALGAN                         /00020001/ [Concomitant]
     Dosage: UNK
     Route: 048
     Dates: start: 20000101
  2. ENBREL [Suspect]
     Indication: RHEUMATOID ARTHRITIS
     Dosage: 50 MG, WEEKLY
     Route: 058
     Dates: start: 20050408, end: 20110804
  3. APRANAX                            /00256202/ [Concomitant]
     Dosage: 550 MG (UNKNOWN FREQUENCY)
     Dates: start: 20000101

REACTIONS (4)
  - DEVICE RELATED SEPSIS [None]
  - BETA HAEMOLYTIC STREPTOCOCCAL INFECTION [None]
  - POST PROCEDURAL SEPSIS [None]
  - OSTEOARTHRITIS [None]
